FAERS Safety Report 22323540 (Version 4)
Quarter: 2023Q2

REPORT INFORMATION
  Report Type: Report from Study
  Country: AU (occurrence: AU)
  Receive Date: 20230516
  Receipt Date: 20230524
  Transmission Date: 20230722
  Serious: Yes (Death, Life-Threatening, Hospitalization)
  Sender: FDA-Public Use
  Company Number: AU-GLAXOSMITHKLINE-AU2023GSK044891

PATIENT

DRUGS (50)
  1. BELANTAMAB MAFODOTIN [Suspect]
     Active Substance: BELANTAMAB MAFODOTIN
     Indication: Plasma cell myeloma refractory
     Dosage: 197 MG, CYC (2.50 MG/KG)
     Route: 042
     Dates: start: 20211115, end: 20211115
  2. BELANTAMAB MAFODOTIN [Suspect]
     Active Substance: BELANTAMAB MAFODOTIN
     Dosage: 150 MG, CYC
     Route: 042
     Dates: start: 20211213, end: 20211213
  3. BELANTAMAB MAFODOTIN [Suspect]
     Active Substance: BELANTAMAB MAFODOTIN
     Dosage: 150 MG, CYC
     Route: 042
     Dates: start: 20221214, end: 20221214
  4. POMALIDOMIDE [Suspect]
     Active Substance: POMALIDOMIDE
     Indication: Plasma cell myeloma refractory
     Dosage: 4.0 MG, CYC
     Route: 048
     Dates: start: 20211115, end: 20211125
  5. POMALIDOMIDE [Suspect]
     Active Substance: POMALIDOMIDE
     Dosage: 3 MG, CYC
     Route: 048
     Dates: start: 20211213, end: 20220102
  6. POMALIDOMIDE [Suspect]
     Active Substance: POMALIDOMIDE
     Dosage: 3.0 MG, CYC
     Route: 048
     Dates: start: 20230208
  7. DEXAMETHASONE [Suspect]
     Active Substance: DEXAMETHASONE
     Indication: Plasma cell myeloma refractory
     Dosage: 40 MG, CYC
     Route: 048
     Dates: start: 20211115, end: 20211115
  8. DEXAMETHASONE [Suspect]
     Active Substance: DEXAMETHASONE
     Dosage: 20 MG, CYC
     Route: 048
     Dates: start: 20211122, end: 20211206
  9. DEXAMETHASONE [Suspect]
     Active Substance: DEXAMETHASONE
     Dosage: 20 MG, CYC
     Route: 048
     Dates: start: 20211213
  10. DEXAMETHASONE [Suspect]
     Active Substance: DEXAMETHASONE
     Dosage: 4.0 MG, CYC
     Route: 048
     Dates: start: 20230208
  11. ARANESP [Concomitant]
     Active Substance: DARBEPOETIN ALFA
     Indication: Product used for unknown indication
     Dosage: UNK, ONCE A WEEK
  12. SULFAMETHOXAZOLE\TRIMETHOPRIM [Concomitant]
     Active Substance: SULFAMETHOXAZOLE\TRIMETHOPRIM
     Indication: Prophylaxis
     Dosage: 1 DF, 3 TIMES PER WEEK
     Route: 048
     Dates: start: 2019
  13. SULFAMETHOXAZOLE\TRIMETHOPRIM [Concomitant]
     Active Substance: SULFAMETHOXAZOLE\TRIMETHOPRIM
     Indication: Pneumocystis jirovecii pneumonia
  14. VALACYCLOVIR HYDROCHLORIDE [Concomitant]
     Active Substance: VALACYCLOVIR HYDROCHLORIDE
     Indication: Antiviral prophylaxis
     Dosage: 500 MG, QOD
     Route: 048
     Dates: start: 2015
  15. PANTOPRAZOLE SODIUM [Concomitant]
     Active Substance: PANTOPRAZOLE SODIUM
     Indication: Product used for unknown indication
     Dosage: 40 MG, BID
  16. SPAN K [Concomitant]
     Indication: Product used for unknown indication
     Dosage: 600 MG, 2 TABLETS
  17. VITAMIN D2 [Concomitant]
     Active Substance: ERGOCALCIFEROL
     Indication: Product used for unknown indication
     Dosage: UNK, QD
  18. ROSUVASTATIN [Concomitant]
     Active Substance: ROSUVASTATIN
     Indication: Product used for unknown indication
     Dosage: 40 MG, NIGHT
  19. AMITRIPTYLINE [Concomitant]
     Active Substance: AMITRIPTYLINE
     Indication: Urinary tract disorder
     Dosage: 25 MG, QD
     Route: 048
     Dates: start: 20230109, end: 20230414
  20. QUESTRAN [Concomitant]
     Active Substance: CHOLESTYRAMINE
     Indication: Diarrhoea
     Dosage: UNK
  21. APIXABAN [Concomitant]
     Active Substance: APIXABAN
     Indication: Thrombosis prophylaxis
     Dosage: 2.5 MG, BID
     Route: 048
     Dates: start: 20230109, end: 20230411
  22. CRESTOR [Concomitant]
     Active Substance: ROSUVASTATIN CALCIUM
     Indication: Hyperlipidaemia
     Dosage: 5 MG, QOD
     Route: 048
     Dates: start: 2011
  23. ZOLEDRONIC ACID [Concomitant]
     Active Substance: ZOLEDRONIC ACID
     Indication: Plasma cell myeloma
     Dosage: 3 MG, (Q3M)
     Route: 042
     Dates: start: 20190917
  24. POTASSIUM CHLORIDE [Concomitant]
     Active Substance: POTASSIUM CHLORIDE
     Indication: Supplementation therapy
     Dosage: 600 MG, Q12H
     Route: 048
     Dates: start: 2017
  25. POTASSIUM CHLORIDE [Concomitant]
     Active Substance: POTASSIUM CHLORIDE
     Indication: Hypokalaemia
     Dosage: 1200 MG, BID
     Route: 048
     Dates: start: 20230327
  26. POTASSIUM CHLORIDE [Concomitant]
     Active Substance: POTASSIUM CHLORIDE
     Dosage: 2 DF, BID
     Route: 048
     Dates: start: 20230401
  27. CHOLECALCIFEROL [Concomitant]
     Active Substance: CHOLECALCIFEROL
     Indication: Supplementation therapy
     Dosage: 1000 IU, QD
     Route: 048
     Dates: start: 20160203
  28. CYANOCOBALAMIN [Concomitant]
     Active Substance: CYANOCOBALAMIN
     Indication: Supplementation therapy
     Dosage: 1000 UG, Q3M
     Route: 030
     Dates: start: 2020
  29. FUROSEMIDE [Concomitant]
     Active Substance: FUROSEMIDE
     Indication: Oedema
     Dosage: 20 MG, PRN
     Route: 048
     Dates: start: 20221008
  30. FUROSEMIDE [Concomitant]
     Active Substance: FUROSEMIDE
     Indication: Transfusion
     Dosage: 40 MG, PRN
     Route: 048
     Dates: start: 20221017
  31. FUROSEMIDE [Concomitant]
     Active Substance: FUROSEMIDE
     Indication: Oedema peripheral
  32. CEPHALEXIN [Concomitant]
     Active Substance: CEPHALEXIN
     Indication: Urinary tract infection
     Dosage: 500 MG, Q6H
     Route: 048
     Dates: start: 20230208, end: 20230214
  33. CEPHALEXIN [Concomitant]
     Active Substance: CEPHALEXIN
     Dosage: 1000 MG, BID
     Route: 048
     Dates: start: 20220530, end: 20220604
  34. CEPHALEXIN [Concomitant]
     Active Substance: CEPHALEXIN
     Dosage: 1.5 G, TID
     Route: 048
     Dates: start: 20220607, end: 20220612
  35. CEPHALEXIN [Concomitant]
     Active Substance: CEPHALEXIN
     Dosage: 500 MG, TID
     Route: 048
     Dates: start: 20220912, end: 20220919
  36. CEPHALEXIN [Concomitant]
     Active Substance: CEPHALEXIN
     Dosage: 500 MG, QID
     Route: 048
     Dates: start: 20221008, end: 20221013
  37. CEPHALEXIN [Concomitant]
     Active Substance: CEPHALEXIN
     Dosage: 1000 MG, BID
     Route: 048
     Dates: start: 20221019, end: 20221024
  38. AMITRIPTYLINE [Concomitant]
     Active Substance: AMITRIPTYLINE
     Indication: Urinary tract infection
     Dosage: 10 MG, QOD
     Route: 048
     Dates: start: 20220502, end: 20230108
  39. CHOLESTYRAMINE [Concomitant]
     Active Substance: CHOLESTYRAMINE
     Indication: Diarrhoea
     Dosage: 4 MG, QOD
     Route: 048
     Dates: start: 20220401
  40. ACETAMINOPHEN [Concomitant]
     Active Substance: ACETAMINOPHEN
     Indication: Osteoarthritis
     Dosage: 665 MG, PRN
     Route: 048
     Dates: start: 2017
  41. ACETAMINOPHEN [Concomitant]
     Active Substance: ACETAMINOPHEN
     Dosage: 1000 MG, PRN
     Route: 048
     Dates: start: 2017
  42. ALBUTEROL [Concomitant]
     Active Substance: ALBUTEROL
     Indication: Asthma
     Dosage: 200 U/G
     Route: 055
     Dates: start: 20220512
  43. BUDESONIDE\FORMOTEROL FUMARATE DIHYDRATE [Concomitant]
     Active Substance: BUDESONIDE\FORMOTEROL FUMARATE DIHYDRATE
     Indication: Asthma
     Dosage: 200/6 U/G
     Route: 055
     Dates: start: 20220512
  44. LOPERAMIDE [Concomitant]
     Active Substance: LOPERAMIDE
     Indication: Diarrhoea
     Dosage: 2 MG, PRN
     Route: 048
     Dates: start: 20220501
  45. CEFTRIAXONE [Concomitant]
     Active Substance: CEFTRIAXONE
     Indication: Upper respiratory tract infection
     Dosage: 500 MG, QID
     Route: 048
     Dates: start: 20221008, end: 20221013
  46. CEFTRIAXONE [Concomitant]
     Active Substance: CEFTRIAXONE
     Indication: Sepsis
     Dosage: 1000 MG, BID
     Route: 048
     Dates: start: 20221019, end: 20221024
  47. CEFTRIAXONE [Concomitant]
     Active Substance: CEFTRIAXONE
     Dosage: 500 MG, Z (Q6H)
     Route: 048
     Dates: start: 20230208, end: 20230214
  48. CEFTRIAXONE [Concomitant]
     Active Substance: CEFTRIAXONE
     Dosage: 1 G, BID
     Route: 042
     Dates: start: 20230415
  49. PSYLLIUM HUSK [Concomitant]
     Active Substance: PSYLLIUM HUSK
     Indication: Diarrhoea
     Dosage: 7 G, QD
     Route: 048
     Dates: start: 20221218
  50. CELECOXIB [Concomitant]
     Active Substance: CELECOXIB
     Indication: Sciatica
     Dosage: 100 MG, PRN
     Route: 048
     Dates: start: 20230123, end: 20230207

REACTIONS (5)
  - Gastrointestinal carcinoma [Fatal]
  - Septic shock [Not Recovered/Not Resolved]
  - Pneumonia aspiration [Recovering/Resolving]
  - Respiratory failure [Recovering/Resolving]
  - Clostridium difficile colitis [Recovered/Resolved]

NARRATIVE: CASE EVENT DATE: 20230322
